FAERS Safety Report 13817765 (Version 8)
Quarter: 2020Q1

REPORT INFORMATION
  Report Type: Spontaneous
  Country: US (occurrence: US)
  Receive Date: 20170731
  Receipt Date: 20200226
  Transmission Date: 20200409
  Serious: Yes (Hospitalization)
  Sender: FDA-Public Use
  Company Number: US-ACTELION-A-US2017-157350

PATIENT
  Age: 21 Year
  Sex: Female
  Weight: 126.98 kg

DRUGS (4)
  1. SILDENAFIL CITRATE. [Concomitant]
     Active Substance: SILDENAFIL CITRATE
     Route: 065
  2. REMODULIN [Suspect]
     Active Substance: TREPROSTINIL
     Indication: PULMONARY ARTERIAL HYPERTENSION
     Dosage: UNK
     Route: 042
     Dates: start: 201912
  3. XARELTO [Suspect]
     Active Substance: RIVAROXABAN
     Indication: PRODUCT USED FOR UNKNOWN INDICATION
     Dosage: UNK
     Route: 048
     Dates: end: 201912
  4. OPSUMIT [Suspect]
     Active Substance: MACITENTAN
     Indication: PULMONARY ARTERIAL HYPERTENSION
     Dosage: 10 MG, QD
     Route: 048
     Dates: start: 20170606

REACTIONS (19)
  - Oedema peripheral [Not Recovered/Not Resolved]
  - Sinus congestion [Not Recovered/Not Resolved]
  - Dermatitis contact [Unknown]
  - Extra dose administered [Unknown]
  - Infusion site dermatitis [Recovered/Resolved]
  - Headache [Not Recovered/Not Resolved]
  - Feeling jittery [Unknown]
  - Sinusitis [Not Recovered/Not Resolved]
  - Depression [Unknown]
  - Medical device site haemorrhage [Unknown]
  - Nausea [Unknown]
  - Right ventricular failure [Unknown]
  - Dyspnoea [Recovered/Resolved]
  - Oxygen saturation decreased [Recovered/Resolved]
  - Rhinitis allergic [Not Recovered/Not Resolved]
  - Infusion site irritation [Unknown]
  - Dizziness postural [Not Recovered/Not Resolved]
  - Hypoxia [Unknown]
  - Head discomfort [Unknown]

NARRATIVE: CASE EVENT DATE: 20170708
